FAERS Safety Report 24431359 (Version 1)
Quarter: 2024Q4

REPORT INFORMATION
  Report Type: Spontaneous
  Country: GB (occurrence: GB)
  Receive Date: 20241014
  Receipt Date: 20241014
  Transmission Date: 20250114
  Serious: Yes (Death, Life-Threatening, Hospitalization, Disabling, Other)
  Sender: SANDOZ
  Company Number: None

PATIENT
  Age: 31 Year
  Sex: Female
  Weight: 63.5 kg

DRUGS (73)
  1. AMITRIPTYLINE HYDROCHLORIDE [Interacting]
     Active Substance: AMITRIPTYLINE HYDROCHLORIDE
     Indication: Muscle spasms
     Dosage: 25 MG, QN (AT NIGHT)
     Route: 065
     Dates: start: 20110810
  2. AMITRIPTYLINE HYDROCHLORIDE [Interacting]
     Active Substance: AMITRIPTYLINE HYDROCHLORIDE
     Indication: Drug withdrawal syndrome
     Dosage: UNK
     Route: 065
  3. AMITRIPTYLINE HYDROCHLORIDE [Interacting]
     Active Substance: AMITRIPTYLINE HYDROCHLORIDE
     Indication: Neuralgia
     Dosage: UNK
     Route: 065
  4. AMITRIPTYLINE HYDROCHLORIDE [Interacting]
     Active Substance: AMITRIPTYLINE HYDROCHLORIDE
     Indication: Serotonin syndrome
     Dosage: UNK
     Route: 065
  5. CODEINE PHOSPHATE [Interacting]
     Active Substance: CODEINE PHOSPHATE
     Dosage: 15-30 MG, QD (DRUG NO LONGER ADMINISTERED)
     Route: 048
     Dates: start: 20110615, end: 20110723
  6. CODEINE PHOSPHATE [Interacting]
     Active Substance: CODEINE PHOSPHATE
     Dosage: UNK, QD (24 EVERY HOUR)
     Route: 048
  7. CODEINE PHOSPHATE [Interacting]
     Active Substance: CODEINE PHOSPHATE
     Indication: Analgesic therapy
     Dosage: UNK
     Route: 048
     Dates: start: 2002, end: 2002
  8. CODEINE PHOSPHATE [Interacting]
     Active Substance: CODEINE PHOSPHATE
     Indication: Serotonin syndrome
     Dosage: UNK
     Route: 048
     Dates: start: 200806, end: 2008
  9. CODEINE PHOSPHATE [Interacting]
     Active Substance: CODEINE PHOSPHATE
     Dosage: UNK
     Route: 065
     Dates: start: 20110224, end: 20110410
  10. CLONAZEPAM [Interacting]
     Active Substance: CLONAZEPAM
     Indication: Sedation
     Dosage: THERAPY END FLAG: DRUG NO LONGER ADMINISTERED
     Route: 048
     Dates: start: 20110224, end: 20110410
  11. DIAZEPAM [Interacting]
     Active Substance: DIAZEPAM
     Indication: Muscle spasms
     Dosage: 1 MG, QID
     Route: 065
     Dates: start: 20110523, end: 20110627
  12. DIAZEPAM [Interacting]
     Active Substance: DIAZEPAM
     Indication: Depression
     Dosage: 20 MG, QD
     Route: 048
     Dates: start: 20110725, end: 20110725
  13. DIAZEPAM [Interacting]
     Active Substance: DIAZEPAM
     Dosage: 5 MILLIGRAM, QID (5 MG QDS AND NOW ON 2-2-4 MG)
     Route: 048
  14. DIAZEPAM [Interacting]
     Active Substance: DIAZEPAM
     Dosage: 5 MILLIGRAM, QID (5 MG QDS AND NOW ON 2-2-4 MG)
     Route: 048
  15. DIAZEPAM [Interacting]
     Active Substance: DIAZEPAM
     Indication: Serotonin syndrome
     Dosage: 8 MG, QD
     Route: 048
     Dates: start: 20110725
  16. DIAZEPAM [Interacting]
     Active Substance: DIAZEPAM
     Dosage: 8 MG, QD
     Route: 048
     Dates: start: 20110725
  17. DOMPERIDONE [Interacting]
     Active Substance: DOMPERIDONE
     Indication: Product used for unknown indication
     Dosage: UNK
     Route: 065
     Dates: start: 20100923, end: 20101108
  18. DOMPERIDONE [Interacting]
     Active Substance: DOMPERIDONE
     Dosage: UNK
     Route: 065
     Dates: start: 20100923, end: 20101108
  19. LORAZEPAM [Interacting]
     Active Substance: LORAZEPAM
     Dosage: 1 MG, QD
     Route: 048
     Dates: start: 20110725
  20. LORAZEPAM [Interacting]
     Active Substance: LORAZEPAM
     Indication: Sedation
     Dosage: 1 MG, QID
     Route: 048
     Dates: start: 20110202, end: 20110410
  21. LORAZEPAM [Interacting]
     Active Substance: LORAZEPAM
     Dosage: 1 MG, QID
     Route: 048
     Dates: start: 20110224, end: 20110410
  22. LORAZEPAM [Interacting]
     Active Substance: LORAZEPAM
     Dosage: 1 MG, QID
     Route: 048
     Dates: start: 20110523, end: 20110627
  23. LORAZEPAM [Interacting]
     Active Substance: LORAZEPAM
     Dosage: 16 MG, QD (4 MG QID)
     Route: 048
     Dates: start: 20110523, end: 20110627
  24. LORAZEPAM [Interacting]
     Active Substance: LORAZEPAM
     Dosage: 4 MG, QD
     Route: 048
     Dates: start: 20110523, end: 20110627
  25. LORAZEPAM [Interacting]
     Active Substance: LORAZEPAM
     Dosage: 4 MG, QID
     Route: 048
     Dates: start: 20110224, end: 20110410
  26. MIRTAZAPINE [Interacting]
     Active Substance: MIRTAZAPINE
     Dosage: 0MG IN THE DAY AND 15MG AT NIGHT15 MG, UNK (30MG IN THE DAY AND 15MG AT NIGHT)
     Route: 065
     Dates: start: 20110224, end: 20110506
  27. MIRTAZAPINE [Interacting]
     Active Substance: MIRTAZAPINE
     Dosage: 15 MG, QD (30 MG AT DAY AND 15 MG AT NIGHT)
     Route: 048
     Dates: start: 20101007, end: 20101012
  28. MIRTAZAPINE [Interacting]
     Active Substance: MIRTAZAPINE
     Indication: Depression
     Dosage: 30 MG, QD
     Route: 048
     Dates: start: 20100923, end: 20111108
  29. MIRTAZAPINE [Interacting]
     Active Substance: MIRTAZAPINE
     Dosage: 30 MG, QD (30 MG IN DAY 15 MG IN NIGHT)
     Route: 065
     Dates: start: 20110224, end: 20110506
  30. MIRTAZAPINE [Interacting]
     Active Substance: MIRTAZAPINE
     Indication: Psychotic disorder
     Dosage: UNK
     Route: 065
     Dates: start: 20100923, end: 20111108
  31. MIRTAZAPINE [Interacting]
     Active Substance: MIRTAZAPINE
     Dosage: UNK (30 MG AT DAY AND 15 MG AT NIGHT)
     Route: 048
  32. OMEPRAZOLE [Interacting]
     Active Substance: OMEPRAZOLE
     Indication: Dyspepsia
     Dosage: 20 MG, QD
     Route: 048
     Dates: start: 20110525
  33. PAROXETINE HYDROCHLORIDE [Interacting]
     Active Substance: PAROXETINE HYDROCHLORIDE
     Dosage: 20 MG, TID
     Route: 048
     Dates: start: 19990801, end: 201105
  34. PAROXETINE HYDROCHLORIDE [Interacting]
     Active Substance: PAROXETINE HYDROCHLORIDE
     Dosage: 40 MG, QD (20 MG 2 PER DAY)
     Route: 048
     Dates: start: 20110523, end: 20110706
  35. PAROXETINE HYDROCHLORIDE [Interacting]
     Active Substance: PAROXETINE HYDROCHLORIDE
     Dosage: 40 MG, QD
     Route: 048
     Dates: start: 19990801, end: 20110706
  36. PAROXETINE HYDROCHLORIDE [Interacting]
     Active Substance: PAROXETINE HYDROCHLORIDE
     Indication: Depression
     Dosage: 60 MG, QD (20 MG THREE TIMES A DAY)
     Route: 048
     Dates: start: 1997, end: 201105
  37. PAROXETINE HYDROCHLORIDE [Interacting]
     Active Substance: PAROXETINE HYDROCHLORIDE
     Indication: Post-traumatic stress disorder
     Dosage: UNK
     Route: 048
     Dates: start: 1996, end: 201105
  38. PAROXETINE HYDROCHLORIDE [Interacting]
     Active Substance: PAROXETINE HYDROCHLORIDE
     Dosage: UNK
     Route: 065
     Dates: start: 20081201, end: 20101210
  39. PAROXETINE HYDROCHLORIDE [Interacting]
     Active Substance: PAROXETINE HYDROCHLORIDE
     Dosage: UNK
     Route: 065
     Dates: start: 201012
  40. PAROXETINE HYDROCHLORIDE [Interacting]
     Active Substance: PAROXETINE HYDROCHLORIDE
     Dosage: UNK
     Route: 065
  41. PHOSPHORUS [Interacting]
     Active Substance: PHOSPHORUS
     Indication: Product used for unknown indication
     Dosage: UNK
     Route: 065
  42. PROCYCLIDINE HYDROCHLORIDE [Interacting]
     Active Substance: PROCYCLIDINE HYDROCHLORIDE
     Dosage: 15 MG, QD (5 MG, TID)
     Route: 048
     Dates: start: 20110503, end: 20110510
  43. PROCYCLIDINE HYDROCHLORIDE [Interacting]
     Active Substance: PROCYCLIDINE HYDROCHLORIDE
     Dosage: 15 MG, QD
     Route: 048
     Dates: start: 20110503, end: 20110510
  44. PROCYCLIDINE HYDROCHLORIDE [Interacting]
     Active Substance: PROCYCLIDINE HYDROCHLORIDE
     Dosage: 20 MG, QD
     Route: 048
     Dates: start: 20110324, end: 20110506
  45. PROCYCLIDINE HYDROCHLORIDE [Interacting]
     Active Substance: PROCYCLIDINE HYDROCHLORIDE
     Dosage: 20 MG, QD
     Route: 065
     Dates: start: 20110415
  46. PROCYCLIDINE HYDROCHLORIDE [Interacting]
     Active Substance: PROCYCLIDINE HYDROCHLORIDE
     Indication: Extrapyramidal disorder
     Dosage: 5 MG, QD
     Route: 048
     Dates: start: 1995, end: 1996
  47. PROCYCLIDINE HYDROCHLORIDE [Interacting]
     Active Substance: PROCYCLIDINE HYDROCHLORIDE
     Indication: Oculogyric crisis
     Dosage: 5 MG, Q24H
     Route: 048
     Dates: start: 1995, end: 1996
  48. PROCYCLIDINE HYDROCHLORIDE [Interacting]
     Active Substance: PROCYCLIDINE HYDROCHLORIDE
     Dosage: UNK
     Route: 065
     Dates: start: 20110415
  49. QUETIAPINE FUMARATE [Interacting]
     Active Substance: QUETIAPINE FUMARATE
     Dosage: 300 MG
     Route: 048
     Dates: start: 20110224, end: 20110506
  50. QUETIAPINE FUMARATE [Interacting]
     Active Substance: QUETIAPINE FUMARATE
     Indication: Psychotic disorder
     Dosage: UNK
     Route: 048
     Dates: start: 19990801, end: 20110706
  51. PAROXETINE HYDROCHLORIDE [Interacting]
     Active Substance: PAROXETINE HYDROCHLORIDE
     Dosage: 180 MG, TID
     Route: 048
  52. PAROXETINE HYDROCHLORIDE [Interacting]
     Active Substance: PAROXETINE HYDROCHLORIDE
     Dosage: 180 MG, TID (60 MG TID)
     Route: 048
     Dates: start: 19990801, end: 201105
  53. PAROXETINE HYDROCHLORIDE [Interacting]
     Active Substance: PAROXETINE HYDROCHLORIDE
     Dosage: 20 MG, BID
     Route: 048
     Dates: start: 201105, end: 20110706
  54. PAROXETINE HYDROCHLORIDE [Interacting]
     Active Substance: PAROXETINE HYDROCHLORIDE
     Dosage: 20 MG, TID
     Route: 048
     Dates: start: 2011, end: 201105
  55. PAROXETINE HYDROCHLORIDE [Interacting]
     Active Substance: PAROXETINE HYDROCHLORIDE
     Dosage: 40 MG
     Route: 048
     Dates: start: 201105, end: 20110706
  56. PAROXETINE HYDROCHLORIDE [Interacting]
     Active Substance: PAROXETINE HYDROCHLORIDE
     Dosage: 60 MG, QD (20 MG 3 TIMES PER DAY)
     Route: 048
     Dates: start: 19990801, end: 201105
  57. PAROXETINE HYDROCHLORIDE [Interacting]
     Active Substance: PAROXETINE HYDROCHLORIDE
     Indication: Depression
     Dosage: 60 MG, QD (20 MG 3 TIMES PER DAY)
     Route: 065
     Dates: start: 1997, end: 201105
  58. PAROXETINE HYDROCHLORIDE [Interacting]
     Active Substance: PAROXETINE HYDROCHLORIDE
     Dosage: UNK
     Route: 048
     Dates: start: 201012, end: 20101210
  59. PAROXETINE HYDROCHLORIDE [Interacting]
     Active Substance: PAROXETINE HYDROCHLORIDE
     Dosage: UNK
     Route: 048
     Dates: start: 201012, end: 201105
  60. PAROXETINE HYDROCHLORIDE [Interacting]
     Active Substance: PAROXETINE HYDROCHLORIDE
     Dosage: UNK
     Route: 065
     Dates: start: 1999
  61. PAROXETINE HYDROCHLORIDE [Interacting]
     Active Substance: PAROXETINE HYDROCHLORIDE
     Dosage: UNK (INTERUPTED)
     Route: 065
     Dates: start: 199712
  62. PAROXETINE HYDROCHLORIDE [Interacting]
     Active Substance: PAROXETINE HYDROCHLORIDE
     Dosage: UNK (INTERUPTED)
     Route: 065
     Dates: start: 200812, end: 20101210
  63. TRAMADOL HYDROCHLORIDE [Interacting]
     Active Substance: TRAMADOL HYDROCHLORIDE
     Indication: Neck pain
     Dosage: 1 DF, QD (4 CYCLICAL)
     Route: 048
     Dates: start: 20080722
  64. TRAMADOL HYDROCHLORIDE [Interacting]
     Active Substance: TRAMADOL HYDROCHLORIDE
     Indication: Back pain
     Dosage: UNSPECIFIED, 50-100, 4 CYCLICALUNK, UNK (4 CYCLICAL, QD) UNK, UNK (4 OT, QD)] UNK, UNK (UNSPECIF
     Route: 048
     Dates: start: 20080722
  65. TRAMADOL HYDROCHLORIDE [Interacting]
     Active Substance: TRAMADOL HYDROCHLORIDE
     Dosage: 100 MG, QD
     Route: 048
     Dates: start: 20081201, end: 20101210
  66. TRAMADOL HYDROCHLORIDE [Interacting]
     Active Substance: TRAMADOL HYDROCHLORIDE
     Indication: Pain
     Dosage: 50-100 MG, QD (4 CYCLICAL)
     Route: 048
     Dates: start: 20081201, end: 20101210
  67. TRAMADOL HYDROCHLORIDE [Interacting]
     Active Substance: TRAMADOL HYDROCHLORIDE
     Indication: Oculogyric crisis
     Dosage: DRUG START/DRUG WITHDRAWNUNK, UNK UNK, UNK (UNK, UNK (4 UNK, QD)) (4 CYCLICAL QD) (UNK
     Route: 065
     Dates: start: 2008, end: 2009
  68. TRAMADOL HYDROCHLORIDE [Interacting]
     Active Substance: TRAMADOL HYDROCHLORIDE
     Dosage: 20 MG (5 MG, 4 TIMES A DAY )
     Route: 065
     Dates: start: 20110725
  69. TRAMADOL HYDROCHLORIDE [Interacting]
     Active Substance: TRAMADOL HYDROCHLORIDE
     Dosage: 4 MG, QD (4 CYCLIC PER DAY)
     Route: 065
  70. TRAMADOL HYDROCHLORIDE [Interacting]
     Active Substance: TRAMADOL HYDROCHLORIDE
     Dosage: DISCONTINUED AFTER 4 OR 5 DAYSUNK, UNK 4 MG, ONCE PER DAY( (4 CYCLICAL, QD 50-100 MG QD) 4 MG,
     Route: 048
     Dates: start: 20081201, end: 20101210
  71. TRAMADOL HYDROCHLORIDE [Interacting]
     Active Substance: TRAMADOL HYDROCHLORIDE
     Dosage: 4 DF
     Route: 048
  72. TRAMADOL HYDROCHLORIDE [Interacting]
     Active Substance: TRAMADOL HYDROCHLORIDE
     Indication: Analgesic therapy
     Dosage: 5 MG, QD
     Route: 044
     Dates: start: 1995, end: 1996
  73. TRAMADOL HYDROCHLORIDE [Interacting]
     Active Substance: TRAMADOL HYDROCHLORIDE
     Dosage: 8 MG, QD
     Route: 065

REACTIONS (120)
  - Cyanosis [Fatal]
  - Paralysis [Unknown]
  - Swollen tongue [Unknown]
  - Drooling [Unknown]
  - Neuroleptic malignant syndrome [Unknown]
  - Disorientation [Not Recovered/Not Resolved]
  - Menstrual disorder [Unknown]
  - Mood swings [Unknown]
  - Mania [Unknown]
  - Feeling of body temperature change [Unknown]
  - Pallor [Unknown]
  - Swelling face [Unknown]
  - Muscle rigidity [Unknown]
  - Hypoaesthesia [Not Recovered/Not Resolved]
  - Cogwheel rigidity [Unknown]
  - Anxiety [Unknown]
  - Emotional disorder [Unknown]
  - Contusion [Not Recovered/Not Resolved]
  - Hyperhidrosis [Unknown]
  - Dissociation [Not Recovered/Not Resolved]
  - Speech disorder [Unknown]
  - Visual impairment [Unknown]
  - Delirium [Unknown]
  - Skin discolouration [Not Recovered/Not Resolved]
  - Tinnitus [Unknown]
  - Feeling jittery [Unknown]
  - Parosmia [Unknown]
  - Gastric pH decreased [Unknown]
  - Dyskinesia [Unknown]
  - Dystonia [Unknown]
  - H1N1 influenza [Unknown]
  - Musculoskeletal stiffness [Not Recovered/Not Resolved]
  - Eye pain [Not Recovered/Not Resolved]
  - Heart rate increased [Unknown]
  - Blood sodium decreased [Unknown]
  - Hypoaesthesia oral [Unknown]
  - Gait disturbance [Unknown]
  - Seizure [Unknown]
  - Schizophrenia [Unknown]
  - Dyspnoea [Unknown]
  - Toxicity to various agents [Unknown]
  - Sleep disorder [Unknown]
  - Aphasia [Not Recovered/Not Resolved]
  - Decreased appetite [Unknown]
  - Suicidal ideation [Not Recovered/Not Resolved]
  - Derealisation [Not Recovered/Not Resolved]
  - Sensory loss [Unknown]
  - Paraesthesia [Unknown]
  - Disturbance in attention [Unknown]
  - Muscle disorder [Unknown]
  - Feeling of despair [Unknown]
  - Mydriasis [Unknown]
  - Premature labour [Unknown]
  - Tachycardia [Unknown]
  - Illness [Unknown]
  - Arthralgia [Unknown]
  - Pyrexia [Unknown]
  - Pruritus [Unknown]
  - Restless legs syndrome [Not Recovered/Not Resolved]
  - Depersonalisation/derealisation disorder [Not Recovered/Not Resolved]
  - Limb injury [Unknown]
  - Incontinence [Not Recovered/Not Resolved]
  - Maternal exposure during pregnancy [Unknown]
  - Tremor [Not Recovered/Not Resolved]
  - Restlessness [Unknown]
  - Urinary retention [Unknown]
  - Psychotic disorder [Recovered/Resolved]
  - Headache [Unknown]
  - Vomiting [Unknown]
  - Vision blurred [Unknown]
  - Hallucinations, mixed [Unknown]
  - Serotonin syndrome [Not Recovered/Not Resolved]
  - Nightmare [Unknown]
  - Dizziness [Unknown]
  - Diarrhoea [Unknown]
  - Fatigue [Unknown]
  - Balance disorder [Unknown]
  - Asthenia [Unknown]
  - Confusional state [Not Recovered/Not Resolved]
  - Somnolence [Not Recovered/Not Resolved]
  - Muscle spasms [Not Recovered/Not Resolved]
  - Muscle spasms [Unknown]
  - Depression [Unknown]
  - Agitation [Unknown]
  - Drug withdrawal syndrome [Unknown]
  - Musculoskeletal stiffness [Unknown]
  - Contusion [Unknown]
  - Contusion [Unknown]
  - Depersonalisation/derealisation disorder [Not Recovered/Not Resolved]
  - Hallucination [Unknown]
  - Dizziness [Unknown]
  - Nightmare [Unknown]
  - Headache [Not Recovered/Not Resolved]
  - Restlessness [Unknown]
  - Schizophrenia [Not Recovered/Not Resolved]
  - Premature labour [Not Recovered/Not Resolved]
  - Premature labour [Unknown]
  - Dystonia [Unknown]
  - Speech disorder [Unknown]
  - Muscle disorder [Unknown]
  - Pallor [Unknown]
  - Aphasia [Not Recovered/Not Resolved]
  - Paralysis [Unknown]
  - Illness [Unknown]
  - Muscle rigidity [Unknown]
  - Suicidal ideation [Not Recovered/Not Resolved]
  - Seizure [Unknown]
  - Fatigue [Unknown]
  - Nightmare [Unknown]
  - Nightmare [Unknown]
  - Toxicity to various agents [Unknown]
  - Drug interaction [Unknown]
  - Drug interaction [Unknown]
  - Off label use [Unknown]
  - Therapeutic product ineffective [Unknown]
  - Therapeutic product ineffective [Unknown]
  - Drug ineffective [Not Recovered/Not Resolved]
  - Exposure during pregnancy [Not Recovered/Not Resolved]
  - Exposure during pregnancy [Unknown]
  - Drug ineffective [Unknown]

NARRATIVE: CASE EVENT DATE: 20010101
